FAERS Safety Report 9271830 (Version 3)
Quarter: 2014Q1

REPORT INFORMATION
  Report Type: Spontaneous
  Country: US (occurrence: US)
  Receive Date: 20130506
  Receipt Date: 20140219
  Transmission Date: 20141002
  Serious: Yes (Hospitalization)
  Sender: FDA-Public Use
  Company Number: US-BAYER-2013-053267

PATIENT
  Age: 14 Year
  Sex: Female
  Weight: 58.96 kg

DRUGS (3)
  1. YAZ [Suspect]
     Indication: ACNE
     Dosage: UNK
     Dates: start: 200905, end: 2010
  2. YAZ [Suspect]
     Indication: MENSTRUATION IRREGULAR
  3. HELEX [Concomitant]

REACTIONS (5)
  - Cerebrovascular accident [None]
  - Pain [None]
  - Injury [None]
  - Fear of disease [None]
  - Pain [None]
